FAERS Safety Report 9869898 (Version 1)
Quarter: 2014Q1

REPORT INFORMATION
  Report Type: Spontaneous
  Country: US (occurrence: None)
  Receive Date: 20140203
  Receipt Date: 20140203
  Transmission Date: 20141002
  Serious: Yes (Other)
  Sender: FDA-Public Use
  Company Number: None

PATIENT
  Age: 49 Year
  Sex: Male
  Weight: 86.18 kg

DRUGS (3)
  1. REVLIMID [Suspect]
     Indication: PLASMA CELL MYELOMA
     Dosage: 25 MG  DAILY X 21 DAYS  ORAL
     Route: 048
     Dates: start: 20131231, end: 20140120
  2. ASPIRIN [Concomitant]
  3. DEXAMETHASONE [Concomitant]

REACTIONS (1)
  - Deep vein thrombosis [None]
